FAERS Safety Report 20896168 (Version 1)
Quarter: 2022Q2

REPORT INFORMATION
  Report Type: Report from Study
  Country: US (occurrence: US)
  Receive Date: 20220531
  Receipt Date: 20220531
  Transmission Date: 20220721
  Serious: No
  Sender: FDA-Public Use
  Company Number: US-NOVARTISTESTPH-NVSC2022US124676

PATIENT
  Sex: Female

DRUGS (1)
  1. PROMACTA [Suspect]
     Active Substance: ELTROMBOPAG OLAMINE
     Indication: Immune thrombocytopenia
     Dosage: 25 MG (TAKE 1 TABLET BY MOUTH DAILY. ADMINISTER ON AN EMPTY STOMACH 1 HOUR BEFORE OR 2 HOURS AFTER A
     Route: 048

REACTIONS (1)
  - Tinnitus [Unknown]
